FAERS Safety Report 5989747-3 (Version None)
Quarter: 2008Q4

REPORT INFORMATION
  Report Type: 
  Country: None (occurrence: None)
  Receive Date: 20081209
  Receipt Date: 20081127
  Transmission Date: 20090506
  Serious: Yes (Disabling)
  Sender: FDA-Public Use
  Company Number: US025105

PATIENT
  Age: 27 Year
  Sex: Female
  Weight: 49 kg

DRUGS (2)
  1. ACTIQ [Suspect]
     Dosage: 200 UG TID BUCCAL
     Route: 002
     Dates: start: 20070801
  2. DURAGESIC-100 [Suspect]
     Dosage: 25 UG ONE PATCH ALL THREE DAYS TRANSDERMAL
     Route: 062
     Dates: start: 20070801

REACTIONS (6)
  - ASTHENIA [None]
  - FATIGUE [None]
  - FEELING ABNORMAL [None]
  - PRODUCT QUALITY ISSUE [None]
  - SOMNOLENCE [None]
  - TINNITUS [None]
